FAERS Safety Report 23778071 (Version 4)
Quarter: 2024Q2

REPORT INFORMATION
  Report Type: Spontaneous
  Country: US (occurrence: US)
  Receive Date: 20240424
  Receipt Date: 20240618
  Transmission Date: 20240716
  Serious: No
  Sender: FDA-Public Use
  Company Number: US-PFIZER INC-PV202400053660

PATIENT
  Age: 78 Year
  Sex: Female

DRUGS (1)
  1. IBRANCE [Suspect]
     Active Substance: PALBOCICLIB
     Dosage: 125 MG

REACTIONS (6)
  - Diarrhoea [Recovered/Resolved]
  - Taste disorder [Unknown]
  - Dizziness [Unknown]
  - White blood cell count decreased [Unknown]
  - Decreased appetite [Unknown]
  - Weight decreased [Recovered/Resolved]
